FAERS Safety Report 19937621 (Version 1)
Quarter: 2021Q4

REPORT INFORMATION
  Report Type: Spontaneous
  Country: FR (occurrence: FR)
  Receive Date: 20211011
  Receipt Date: 20211011
  Transmission Date: 20220303
  Serious: Yes (Congenital Anomaly, Other)
  Sender: FDA-Public Use
  Company Number: FR-ABBVIE-21K-056-4110494-00

PATIENT
  Sex: Male

DRUGS (2)
  1. VALPROATE SODIUM [Suspect]
     Active Substance: VALPROATE SODIUM
     Indication: Maternal exposure timing unspecified
     Route: 064
  2. CARBAMAZEPINE [Suspect]
     Active Substance: CARBAMAZEPINE
     Indication: Maternal exposure timing unspecified
     Route: 064

REACTIONS (9)
  - Cardiac disorder [Unknown]
  - Diabetes insipidus [Unknown]
  - Cleft lip [Recovered/Resolved with Sequelae]
  - Talipes [Unknown]
  - Tooth malformation [Unknown]
  - Developmental delay [Unknown]
  - Depression [Unknown]
  - Enuresis [Recovered/Resolved with Sequelae]
  - Foetal exposure during pregnancy [Unknown]

NARRATIVE: CASE EVENT DATE: 19780920
